FAERS Safety Report 11388555 (Version 3)
Quarter: 2016Q4

REPORT INFORMATION
  Report Type: Spontaneous
  Country: PT (occurrence: PT)
  Receive Date: 20150817
  Receipt Date: 20161227
  Transmission Date: 20170206
  Serious: Yes (Other)
  Sender: FDA-Public Use
  Company Number: PT-GILEAD-2015-0166810

PATIENT
  Age: 51 Year
  Sex: Male

DRUGS (2)
  1. OTTOFLOX [Concomitant]
     Indication: OTITIS MEDIA ACUTE
     Dosage: 4 GTT, TID
     Route: 001
     Dates: start: 20150518, end: 20150524
  2. HARVONI [Suspect]
     Active Substance: LEDIPASVIR\SOFOSBUVIR
     Indication: HEPATITIS C
     Dosage: VALIDADE: 31-01-2017
     Route: 048
     Dates: start: 20150414, end: 20150723

REACTIONS (1)
  - Skin exfoliation [Unknown]

NARRATIVE: CASE EVENT DATE: 201506
